FAERS Safety Report 16355808 (Version 2)
Quarter: 2019Q2

REPORT INFORMATION
  Report Type: Spontaneous
  Country: US (occurrence: US)
  Receive Date: 20190525
  Receipt Date: 20190526
  Transmission Date: 20190711
  Serious: No
  Sender: FDA-Public Use
  Company Number: US-JNJFOC-20190510062

PATIENT
  Age: 84 Year
  Sex: Male
  Weight: 68.95 kg

DRUGS (1)
  1. TYLENOL REGULAR STRENGTH [Suspect]
     Active Substance: ACETAMINOPHEN
     Indication: CHEST PAIN
     Dosage: 1 OR 2 TABLETS ONCE OR TWICE DAILY OR EVERY OTHER DAY FOR A YEAR
     Route: 048

REACTIONS (2)
  - Incorrect dose administered [Unknown]
  - Therapeutic response unexpected [Unknown]
